FAERS Safety Report 9562886 (Version 2)
Quarter: 2013Q4

REPORT INFORMATION
  Report Type: Spontaneous
  Country: FR (occurrence: FR)
  Receive Date: 20130927
  Receipt Date: 20131022
  Transmission Date: 20140711
  Serious: Yes (Hospitalization)
  Sender: FDA-Public Use
  Company Number: ALCN2013FR004840

PATIENT
  Age: 8 Month
  Sex: Female
  Weight: 7.8 kg

DRUGS (1)
  1. ATROPINE SULFATE [Suspect]
     Indication: OPHTHALMOLOGICAL EXAMINATION
     Dosage: 1 GTT, ONCE/SINGLE
     Route: 047
     Dates: start: 20130904, end: 20130904

REACTIONS (7)
  - Hypotonia [Recovered/Resolved]
  - Agitation [Recovered/Resolved]
  - Tremor [Recovered/Resolved]
  - Tachycardia [Recovered/Resolved]
  - Erythema [Recovered/Resolved]
  - Mydriasis [Recovering/Resolving]
  - Drug effect prolonged [Recovering/Resolving]
